FAERS Safety Report 19808877 (Version 1)
Quarter: 2021Q3

REPORT INFORMATION
  Report Type: Spontaneous
  Country: US (occurrence: US)
  Receive Date: 20210909
  Receipt Date: 20210909
  Transmission Date: 20211014
  Serious: No
  Sender: FDA-Public Use
  Company Number: None

PATIENT
  Age: 51 Year
  Sex: Male
  Weight: 74.25 kg

DRUGS (3)
  1. TURMERIC [Concomitant]
     Active Substance: HERBALS\TURMERIC
  2. SYMBICORT [Concomitant]
     Active Substance: BUDESONIDE\FORMOTEROL FUMARATE DIHYDRATE
  3. CETIRIZINE HYDROCHLORIDE 10 MG ANTIHISTAMINE [Suspect]
     Active Substance: CETIRIZINE HYDROCHLORIDE
     Indication: SEASONAL ALLERGY
     Dosage: ?          QUANTITY:1 TABLET(S);?
     Route: 048
     Dates: start: 20210815, end: 20210903

REACTIONS (1)
  - Urticaria [None]

NARRATIVE: CASE EVENT DATE: 20210906
